FAERS Safety Report 7577114-0 (Version None)
Quarter: 2011Q2

REPORT INFORMATION
  Report Type: 
  Country: None (occurrence: None)
  Receive Date: 20110628
  Receipt Date: 20110608
  Transmission Date: 20111010
  Serious: Yes (Other)
  Sender: FDA-Public Use
  Company Number: US-BAYER-2011-050583

PATIENT
  Age: 59 Year
  Sex: Female

DRUGS (4)
  1. RID 1-2-3 SYSTEM [Suspect]
     Route: 061
  2. ANTIHYPERTENSIVES [Concomitant]
  3. VALIUM [Concomitant]
  4. ANTIDEPRESSANTS [Concomitant]

REACTIONS (3)
  - PRURITUS [None]
  - VISUAL IMPAIRMENT [None]
  - HYPERSENSITIVITY [None]
